FAERS Safety Report 6594914-4 (Version None)
Quarter: 2010Q1

REPORT INFORMATION
  Report Type: 
  Country: None (occurrence: None)
  Receive Date: 20100222
  Receipt Date: 20100210
  Transmission Date: 20100710
  Serious: Yes (Death)
  Sender: FDA-Public Use
  Company Number: RS-GENENTECH-298333

PATIENT
  Sex: Female

DRUGS (4)
  1. MABTHERA [Suspect]
     Indication: NON-HODGKIN'S LYMPHOMA
     Dosage: 700 MG, Q3W
     Route: 042
     Dates: start: 20090507, end: 20091123
  2. ENDOXAN [Suspect]
     Indication: NON-HODGKIN'S LYMPHOMA
     Dosage: 1350 MG, Q3W
     Route: 042
     Dates: start: 20090508, end: 20091124
  3. ONCOVIN [Suspect]
     Indication: NON-HODGKIN'S LYMPHOMA
     Dosage: 2 MG, Q3W
     Route: 042
     Dates: start: 20090508, end: 20091124
  4. PRONISON [Concomitant]
     Indication: PREMEDICATION
     Dosage: 100 MG, Q3W
     Route: 042
     Dates: start: 20090508, end: 20091128

REACTIONS (1)
  - DEATH [None]
